FAERS Safety Report 8160635-X (Version None)
Quarter: 2012Q1

REPORT INFORMATION
  Report Type: 
  Country: None (occurrence: None)
  Receive Date: 20120223
  Receipt Date: 20120210
  Transmission Date: 20120608
  Serious: Yes (Hospitalization)
  Sender: FDA-Public Use
  Company Number: TR-ROCHE-1019623

PATIENT
  Sex: Male
  Weight: 80 kg

DRUGS (4)
  1. RISEDRONATE SODIUM [Concomitant]
     Dates: start: 20090606
  2. PEGINTERFERON ALFA-2A [Suspect]
     Indication: HEPATITIS B
     Route: 058
     Dates: start: 20100518, end: 20111018
  3. TENOFOVIR DISOPROXIL FUMARATE [Suspect]
     Indication: HEPATITIS B
     Route: 048
     Dates: start: 20100518
  4. PEGINTERFERON ALFA-2A [Suspect]
     Dates: start: 20111025

REACTIONS (3)
  - COUGH [None]
  - DYSPNOEA [None]
  - BRONCHIECTASIS [None]
